FAERS Safety Report 5832637-7 (Version None)
Quarter: 2008Q3

REPORT INFORMATION
  Report Type: 
  Country: None (occurrence: None)
  Receive Date: 20080804
  Receipt Date: 20080727
  Transmission Date: 20090109
  Serious: Yes (Other)
  Sender: FDA-Public Use
  Company Number: PHEH2008US06787

PATIENT

DRUGS (1)
  1. DIOVAN [Suspect]

REACTIONS (1)
  - MALAISE [None]
